FAERS Safety Report 4293930-5 (Version None)
Quarter: 2004Q1

REPORT INFORMATION
  Report Type: 
  Country: None (occurrence: None)
  Receive Date: 20040212
  Receipt Date: 20040212
  Transmission Date: 20041129
  Serious: Yes (Death)
  Sender: FDA-Public Use
  Company Number: None

PATIENT
  Age: 39 Year
  Sex: Male
  Weight: 95 kg

DRUGS (2)
  1. SERTRALINE HCL [Suspect]
     Indication: DEPRESSION
     Dosage: 50 MG ONCE A DAY ORAL
     Route: 048
     Dates: start: 20031209, end: 20031212
  2. PAROXETINE HCL [Suspect]
     Indication: DEPRESSION
     Dosage: 20 MG ONCE A DAY ORAL
     Route: 048
     Dates: start: 20031212, end: 20031225

REACTIONS (7)
  - AKATHISIA [None]
  - COMPLETED SUICIDE [None]
  - IMPULSIVE BEHAVIOUR [None]
  - MALAISE [None]
  - MENTAL DISORDER [None]
  - MUSCLE TIGHTNESS [None]
  - SOMNOLENCE [None]
